FAERS Safety Report 13781485 (Version 1)
Quarter: 2017Q3

REPORT INFORMATION
  Report Type: Spontaneous
  Country: US (occurrence: US)
  Receive Date: 20170724
  Receipt Date: 20170724
  Transmission Date: 20171127
  Serious: No
  Sender: FDA-Public Use
  Company Number: None

PATIENT
  Age: 75 Year
  Sex: Male

DRUGS (1)
  1. SPRYCEL [Suspect]
     Active Substance: DASATINIB

REACTIONS (5)
  - Rash [None]
  - No reaction on previous exposure to drug [None]
  - Fatigue [None]
  - Arthralgia [None]
  - Pruritus [None]

NARRATIVE: CASE EVENT DATE: 20170630
